FAERS Safety Report 21746210 (Version 1)
Quarter: 2022Q4

REPORT INFORMATION
  Report Type: Spontaneous
  Country: US (occurrence: None)
  Receive Date: 20221216
  Receipt Date: 20221216
  Transmission Date: 20230113
  Serious: No
  Sender: FDA-Public Use
  Company Number: None

PATIENT
  Sex: Female

DRUGS (1)
  1. VELETRI [Suspect]
     Active Substance: EPOPROSTENOL
     Indication: Pulmonary arterial hypertension
     Dosage: OTHER QUANTITY : 30 NG/KG/MIR;?FREQUENCY : AS DIRECTED;?
     Route: 042
     Dates: start: 202101

REACTIONS (5)
  - Device defective [None]
  - Product quality issue [None]
  - Malaise [None]
  - Respiratory syncytial virus infection [None]
  - Respiration abnormal [None]
